FAERS Safety Report 12183413 (Version 1)
Quarter: 2016Q1

REPORT INFORMATION
  Report Type: Spontaneous
  Country: US (occurrence: None)
  Receive Date: 20160315
  Receipt Date: 20160315
  Transmission Date: 20160526
  Serious: Yes (Hospitalization, Disabling)
  Sender: FDA-Public Use
  Company Number: None

PATIENT
  Age: 33 Year
  Sex: Female
  Weight: 99.79 kg

DRUGS (11)
  1. VITAMIN A [Concomitant]
     Active Substance: VITAMIN A
  2. VITAMIN E [Concomitant]
     Active Substance: .ALPHA.-TOCOPHEROL
  3. LAMICTAL [Suspect]
     Active Substance: LAMOTRIGINE
     Indication: DRUG THERAPY
     Route: 048
     Dates: start: 20121001, end: 20131001
  4. ABILIFY [Suspect]
     Active Substance: ARIPIPRAZOLE
     Indication: BIPOLAR DISORDER
     Route: 048
     Dates: start: 20080520, end: 20120301
  5. APPLE CIDER [Concomitant]
  6. MUTLI VITAMIN [Concomitant]
  7. VITAMIN B [Concomitant]
     Active Substance: VITAMIN B
  8. VITAMIN C [Concomitant]
     Active Substance: ASCORBIC ACID
  9. CALCIUM [Concomitant]
     Active Substance: CALCIUM
  10. MAGNESIUM [Concomitant]
     Active Substance: MAGNESIUM
  11. VITAMIN D [Concomitant]
     Active Substance: CHOLECALCIFEROL

REACTIONS (8)
  - Bowel movement irregularity [None]
  - Indifference [None]
  - Muscle tightness [None]
  - Headache [None]
  - Incontinence [None]
  - Insulin resistance [None]
  - Sensory loss [None]
  - Weight increased [None]

NARRATIVE: CASE EVENT DATE: 20120301
